FAERS Safety Report 21955043 (Version 4)
Quarter: 2023Q2

REPORT INFORMATION
  Report Type: Report from Study
  Country: CA (occurrence: CA)
  Receive Date: 20230206
  Receipt Date: 20230417
  Transmission Date: 20230721
  Serious: Yes (Hospitalization)
  Sender: FDA-Public Use
  Company Number: CA-002147023-NVSC2022CA116736

PATIENT
  Age: 72 Year
  Sex: Female

DRUGS (2)
  1. HYRIMOZ [Suspect]
     Active Substance: ADALIMUMAB-ADAZ
     Indication: Crohn^s disease
     Dosage: 40 MG
     Route: 058
     Dates: start: 20220513
  2. HYRIMOZ [Suspect]
     Active Substance: ADALIMUMAB-ADAZ
     Dosage: 40 MG, BIW
     Route: 058
     Dates: start: 20230114

REACTIONS (17)
  - Malaise [Unknown]
  - Fall [Unknown]
  - Lichen sclerosus [Unknown]
  - Fatigue [Unknown]
  - Sciatic nerve injury [Unknown]
  - Oesophagitis [Unknown]
  - Acquired oesophageal web [Unknown]
  - Arthralgia [Unknown]
  - Asthenia [Unknown]
  - Dysphagia [Unknown]
  - Frequent bowel movements [Unknown]
  - Diarrhoea [Unknown]
  - Flatulence [Unknown]
  - Abdominal pain [Unknown]
  - Nausea [Recovered/Resolved]
  - Vomiting [Recovered/Resolved]
  - Vomiting [Unknown]

NARRATIVE: CASE EVENT DATE: 20220515
